FAERS Safety Report 21299450 (Version 1)
Quarter: 2022Q3

REPORT INFORMATION
  Report Type: Spontaneous
  Country: US (occurrence: US)
  Receive Date: 20220906
  Receipt Date: 20220906
  Transmission Date: 20221027
  Serious: Yes (Other)
  Sender: FDA-Public Use
  Company Number: US-009507513-2208USA011524

PATIENT
  Age: 64 Year
  Sex: Female

DRUGS (6)
  1. KEYTRUDA [Suspect]
     Active Substance: PEMBROLIZUMAB
     Indication: Triple negative breast cancer
     Dosage: UNK, Q3W
     Route: 042
     Dates: start: 20220629
  2. CARBOPLATIN [Concomitant]
     Active Substance: CARBOPLATIN
     Dosage: WITH KEYTRUDA EVERY 21 DAYS
  3. PACLITAXEL [Concomitant]
     Active Substance: PACLITAXEL
     Dosage: WITH KEYTRUDA EVERY 21 DAYS
  4. ALPRAZOLAM [Concomitant]
     Active Substance: ALPRAZOLAM
  5. ZOFRAN [Concomitant]
     Active Substance: ONDANSETRON HYDROCHLORIDE
  6. COMPAZINE [Concomitant]
     Active Substance: PROCHLORPERAZINE MALEATE

REACTIONS (2)
  - Rash macular [Recovering/Resolving]
  - Rash pruritic [Not Recovered/Not Resolved]

NARRATIVE: CASE EVENT DATE: 20220820
